FAERS Safety Report 5573406-5 (Version None)
Quarter: 2007Q4

REPORT INFORMATION
  Report Type: 
  Country: None (occurrence: None)
  Receive Date: 20071226
  Receipt Date: 20071218
  Transmission Date: 20080405
  Serious: Yes (Other)
  Sender: FDA-Public Use
  Company Number: US-JNJFOC-20071203927

PATIENT
  Sex: Male
  Weight: 70.76 kg

DRUGS (3)
  1. LEVAQUIN [Suspect]
     Indication: PROSTATITIS
     Dosage: 30 DAY COURSE
     Route: 048
  2. TYLENOL [Concomitant]
     Indication: PAIN
     Route: 065
  3. MULTIVITAMINS WITH ZINC AND MAGNESIUM, VITAMIN C AND B [Concomitant]
     Indication: NUTRITIONAL SUPPORT
     Route: 065

REACTIONS (3)
  - ARTHRALGIA [None]
  - DRUG INEFFECTIVE [None]
  - PROSTATIC SPECIFIC ANTIGEN INCREASED [None]
